FAERS Safety Report 15901597 (Version 1)
Quarter: 2019Q1

REPORT INFORMATION
  Report Type: Spontaneous
  Country: RU (occurrence: RU)
  Receive Date: 20190201
  Receipt Date: 20190201
  Transmission Date: 20190417
  Serious: Yes (Death, Disabling, Other)
  Sender: FDA-Public Use
  Company Number: RU-CELGENEUS-RUS-20190108497

PATIENT
  Age: 81 Year
  Sex: Male
  Weight: 85 kg

DRUGS (1)
  1. REVLIMID [Suspect]
     Active Substance: LENALIDOMIDE
     Indication: PLASMA CELL MYELOMA
     Dosage: 10 MILLIGRAM
     Route: 048
     Dates: start: 20100120, end: 20100924

REACTIONS (2)
  - Myelodysplastic syndrome [Fatal]
  - Myeloid leukaemia [Fatal]

NARRATIVE: CASE EVENT DATE: 20110818
